FAERS Safety Report 20871926 (Version 1)
Quarter: 2022Q2

REPORT INFORMATION
  Report Type: Report from Study
  Country: JP (occurrence: JP)
  Receive Date: 20220525
  Receipt Date: 20220525
  Transmission Date: 20220720
  Serious: Yes (Death, Life-Threatening, Hospitalization, Other)
  Sender: FDA-Public Use
  Company Number: JP-NBI-J201901459

PATIENT
  Age: 59 Year
  Sex: Male
  Weight: 47 kg

DRUGS (1)
  1. OFEV [Suspect]
     Active Substance: NINTEDANIB
     Indication: Idiopathic interstitial pneumonia
     Route: 065
     Dates: end: 20201023

REACTIONS (4)
  - Interstitial lung disease [Fatal]
  - Pneumothorax [Recovering/Resolving]
  - Hepatic function abnormal [Recovered/Resolved]
  - Hepatic function abnormal [Recovering/Resolving]

NARRATIVE: CASE EVENT DATE: 20170623
